FAERS Safety Report 23620649 (Version 5)
Quarter: 2024Q2

REPORT INFORMATION
  Report Type: Report from Study
  Country: CA (occurrence: CA)
  Receive Date: 20240312
  Receipt Date: 20240513
  Transmission Date: 20240716
  Serious: Yes (Other)
  Sender: FDA-Public Use
  Company Number: CA-SANDOZ-SDZ2023CA004563

PATIENT
  Sex: Female

DRUGS (1)
  1. ERELZI [Suspect]
     Active Substance: ETANERCEPT-SZZS
     Indication: Psoriatic arthropathy
     Dosage: 50 MG, PRE-FILLED PEN
     Route: 058
     Dates: start: 20220909

REACTIONS (8)
  - Surgery [Unknown]
  - Foot operation [Unknown]
  - Immunosuppression [Unknown]
  - Pain [Unknown]
  - Malaise [Not Recovered/Not Resolved]
  - Dysphonia [Unknown]
  - Illness [Unknown]
  - Post procedural complication [Unknown]
